FAERS Safety Report 7324473-X (Version None)
Quarter: 2011Q1

REPORT INFORMATION
  Report Type: 
  Country: None (occurrence: None)
  Receive Date: 20110218
  Receipt Date: 20110209
  Transmission Date: 20110831
  Serious: Yes (Other)
  Sender: FDA-Public Use
  Company Number: 2011SP006177

PATIENT
  Age: 40 Year
  Sex: Female

DRUGS (2)
  1. MENOPUR [Suspect]
     Indication: INFERTILITY
     Dosage: 150 IU;QD;SC
     Route: 058
     Dates: start: 20110121, end: 20110126
  2. FOLLISTIM [Suspect]
     Indication: PRODUCT USED FOR UNKNOWN INDICATION
     Dosage: 300 IU
     Dates: start: 20110121

REACTIONS (3)
  - HYPOPHAGIA [None]
  - WEIGHT DECREASED [None]
  - OESOPHAGEAL ULCER [None]
